FAERS Safety Report 9347200 (Version 3)
Quarter: 2013Q4

REPORT INFORMATION
  Report Type: Spontaneous
  Country: US (occurrence: US)
  Receive Date: 20130613
  Receipt Date: 20131021
  Transmission Date: 20140711
  Serious: Yes (Hospitalization, Other)
  Sender: FDA-Public Use
  Company Number: US-PFIZER INC-2013177328

PATIENT
  Age: 68 Year
  Sex: Female
  Weight: 104.31 kg

DRUGS (3)
  1. LYRICA [Suspect]
     Indication: NEURALGIA
     Dosage: 200 MG, 2X/DAY
     Route: 048
  2. INSULIN [Concomitant]
     Indication: DIABETES MELLITUS
     Dosage: 20 UNITS/DAY
  3. NORCO [Concomitant]
     Dosage: UNK, AS NEEDED

REACTIONS (4)
  - Fall [Unknown]
  - Upper limb fracture [Recovered/Resolved]
  - Weight decreased [Unknown]
  - Blood glucose abnormal [Unknown]
